FAERS Safety Report 20797846 (Version 1)
Quarter: 2022Q2

REPORT INFORMATION
  Report Type: Spontaneous
  Country: US (occurrence: None)
  Receive Date: 20220506
  Receipt Date: 20220506
  Transmission Date: 20220721
  Serious: No
  Sender: FDA-Public Use
  Company Number: None

PATIENT
  Sex: Male

DRUGS (1)
  1. HEPARIN LOCK FLUSH [Suspect]
     Active Substance: HEPARIN SODIUM
     Indication: Factor VIII deficiency
     Dosage: OTHER QUANTITY : 300UNITS/3ML;?OTHER FREQUENCY : EVERY 24 HOURS;?
     Route: 042
     Dates: start: 20220422

REACTIONS (2)
  - Incorrect dose administered [None]
  - Product preparation error [None]
